FAERS Safety Report 16908945 (Version 1)
Quarter: 2019Q4

REPORT INFORMATION
  Report Type: Spontaneous
  Country: GB (occurrence: GB)
  Receive Date: 20191011
  Receipt Date: 20191011
  Transmission Date: 20200122
  Serious: Yes (Other)
  Sender: FDA-Public Use
  Company Number: GB-MYLANLABS-2019M1095488

PATIENT
  Age: 63 Year
  Sex: Female
  Weight: 67.12 kg

DRUGS (3)
  1. ESTRADIOL. [Concomitant]
     Active Substance: ESTRADIOL
     Dosage: 10 MICROGRAM
  2. HYLO-FORTE [Concomitant]
     Active Substance: HYALURONATE SODIUM
  3. DOXYCYCLINE. [Suspect]
     Active Substance: DOXYCYCLINE
     Indication: ARTHROPOD BITE
     Dosage: 200 MILLIGRAM, QD
     Route: 048
     Dates: start: 20190606, end: 20190619

REACTIONS (2)
  - Sunburn [Not Recovered/Not Resolved]
  - Product label issue [Unknown]
